FAERS Safety Report 9611296 (Version 2)
Quarter: 2014Q2

REPORT INFORMATION
  Report Type: Report from Study
  Country: DE (occurrence: DE)
  Receive Date: 20131010
  Receipt Date: 20140522
  Transmission Date: 20141212
  Serious: Yes (Other)
  Sender: FDA-Public Use
  Company Number: DE-BIOGENIDEC-2013BI096693

PATIENT
  Age: 45 Year
  Sex: Female
  Weight: 72 kg

DRUGS (1)
  1. AVONEX [Suspect]
     Indication: MULTIPLE SCLEROSIS
     Route: 030
     Dates: start: 20090930

REACTIONS (3)
  - Bladder neoplasm [Not Recovered/Not Resolved]
  - Rash generalised [Not Recovered/Not Resolved]
  - Drug hypersensitivity [Not Recovered/Not Resolved]
